FAERS Safety Report 22737251 (Version 3)
Quarter: 2025Q3

REPORT INFORMATION
  Report Type: Spontaneous
  Country: US (occurrence: US)
  Receive Date: 20230721
  Receipt Date: 20250922
  Transmission Date: 20251020
  Serious: Yes (Hospitalization)
  Sender: PFIZER
  Company Number: US-PFIZER INC-202300253739

PATIENT
  Age: 80 Year
  Sex: Male
  Weight: 64.86 kg

DRUGS (2)
  1. VYNDAMAX [Suspect]
     Active Substance: TAFAMIDIS
     Indication: Cardiac amyloidosis
     Dosage: 61 MG, 1X/DAY
  2. VYNDAMAX [Suspect]
     Active Substance: TAFAMIDIS
     Indication: Acquired ATTR amyloidosis

REACTIONS (4)
  - Cardiac failure congestive [Not Recovered/Not Resolved]
  - Pericardial effusion [Unknown]
  - Ascites [Recovered/Resolved]
  - Sensation of foreign body [Unknown]

NARRATIVE: CASE EVENT DATE: 20230717
